FAERS Safety Report 16934517 (Version 1)
Quarter: 2019Q4

REPORT INFORMATION
  Report Type: Spontaneous
  Country: IT (occurrence: IT)
  Receive Date: 20191018
  Receipt Date: 20191018
  Transmission Date: 20200122
  Serious: Yes (Other)
  Sender: FDA-Public Use
  Company Number: IT-ROCHE-2446693

PATIENT
  Age: 49 Year
  Sex: Female

DRUGS (3)
  1. DELTACORTENE [Concomitant]
     Active Substance: PREDNISONE
     Route: 048
     Dates: start: 20190901, end: 20190910
  2. ESBRIET [Suspect]
     Active Substance: PIRFENIDONE
     Indication: PRODUCT USED FOR UNKNOWN INDICATION
     Route: 048
     Dates: start: 20190716, end: 20190910
  3. BISOPROLOL FUMARATE. [Concomitant]
     Active Substance: BISOPROLOL FUMARATE
     Route: 048
     Dates: start: 20190901, end: 20190910

REACTIONS (2)
  - Respiratory disorder [Unknown]
  - Dyspnoea [Unknown]

NARRATIVE: CASE EVENT DATE: 20190910
